FAERS Safety Report 6885357-4 (Version None)
Quarter: 2010Q3

REPORT INFORMATION
  Report Type: 
  Country: None (occurrence: None)
  Receive Date: 20100729
  Receipt Date: 20080321
  Transmission Date: 20110219
  Serious: No
  Sender: FDA-Public Use
  Company Number: US-PFIZER INC-2008004096

PATIENT
  Sex: Male
  Weight: 95.4 kg

DRUGS (5)
  1. CELEBREX [Suspect]
     Indication: KNEE OPERATION
     Dates: start: 20070901, end: 20071224
  2. DIOVAN HCT [Concomitant]
  3. TETRACYCLINE [Concomitant]
  4. RANITIDINE [Concomitant]
  5. ACETYLSALICYLIC ACID SRT [Concomitant]

REACTIONS (3)
  - BURNING SENSATION [None]
  - DRY SKIN [None]
  - PENIS DISORDER [None]
